FAERS Safety Report 8165339-5 (Version None)
Quarter: 2012Q1

REPORT INFORMATION
  Report Type: 
  Country: None (occurrence: None)
  Receive Date: 20120222
  Receipt Date: 20120222
  Transmission Date: 20120608
  Serious: Yes (Hospitalization)
  Sender: FDA-Public Use
  Company Number: None

PATIENT
  Sex: Female
  Weight: 88.905 kg

DRUGS (2)
  1. SOLU-MEDROL [Suspect]
     Indication: WEGENER'S GRANULOMATOSIS
     Dosage: IV
     Route: 042
  2. RITUXAN [Suspect]
     Dosage: IV
     Route: 042
     Dates: start: 20120210

REACTIONS (1)
  - PANCREATITIS [None]
